FAERS Safety Report 23880732 (Version 3)
Quarter: 2024Q2

REPORT INFORMATION
  Report Type: Spontaneous
  Country: FR (occurrence: None)
  Receive Date: 20240521
  Receipt Date: 20240531
  Transmission Date: 20240716
  Serious: Yes (Life-Threatening, Disabling, Other)
  Sender: FDA-Public Use
  Company Number: 2024A117860

PATIENT
  Age: 33 Year
  Sex: Female
  Weight: 86 kg

DRUGS (8)
  1. NEXIUM [Suspect]
     Active Substance: ESOMEPRAZOLE MAGNESIUM
     Indication: Gastrointestinal disorder
     Route: 048
  2. LYRICA [Suspect]
     Active Substance: PREGABALIN
     Indication: Facial pain
     Dosage: 600 MILLIGRAM, 0.5/DAY
     Route: 048
  3. ELIQUIS [Suspect]
     Active Substance: APIXABAN
     Indication: Thrombosis
     Dosage: 5 MILLIGRAM, 0.5/DAY
  4. ELIQUIS [Suspect]
     Active Substance: APIXABAN
     Indication: Phlebitis
     Dosage: 5 MILLIGRAM, 0.5/DAY
  5. RIVOTRIL [Suspect]
     Active Substance: CLONAZEPAM
     Indication: Facial pain
     Dosage: UNK UNK, 1/DAY
     Route: 048
  6. TRAMADOL [Concomitant]
     Active Substance: TRAMADOL\TRAMADOL HYDROCHLORIDE
     Indication: Pain
     Dosage: 200 MILLIGRAM, 0.5/DAY
     Route: 048
  7. LORAZEPAM [Concomitant]
     Active Substance: LORAZEPAM
     Indication: Insomnia
     Dosage: AT BED TIME
     Route: 048
  8. DESOGESTREL\ETHINYL ESTRADIOL [Concomitant]
     Active Substance: DESOGESTREL\ETHINYL ESTRADIOL
     Indication: Menstruation delayed
     Dosage: 30 MILLIGRAM, 1/DAY
     Route: 048

REACTIONS (6)
  - Phlebitis [Not Recovered/Not Resolved]
  - Thrombosis [Not Recovered/Not Resolved]
  - Arthropathy [Unknown]
  - Staphylococcal infection [Unknown]
  - Intervertebral disc protrusion [Unknown]
  - Staphylococcal infection [Unknown]

NARRATIVE: CASE EVENT DATE: 20231012
